FAERS Safety Report 4478467-2 (Version None)
Quarter: 2004Q4

REPORT INFORMATION
  Report Type: 
  Country: None (occurrence: None)
  Receive Date: 20041018
  Receipt Date: 20041018
  Transmission Date: 20050328
  Serious: Yes (Other)
  Sender: FDA-Public Use
  Company Number: None

PATIENT
  Age: 30 Year
  Sex: Female
  Weight: 79.3795 kg

DRUGS (1)
  1. ZOLOFT [Suspect]
     Indication: PREMENSTRUAL SYNDROME
     Dosage: 200 MG DAILY ORAL
     Route: 048
     Dates: start: 20000105, end: 20041016

REACTIONS (5)
  - ALOPECIA [None]
  - HYPERTENSION [None]
  - LIBIDO DECREASED [None]
  - RESTLESS LEGS SYNDROME [None]
  - WEIGHT INCREASED [None]
